FAERS Safety Report 5968652-2 (Version None)
Quarter: 2008Q4

REPORT INFORMATION
  Report Type: 
  Country: None (occurrence: None)
  Receive Date: 20081126
  Receipt Date: 20081120
  Transmission Date: 20090506
  Serious: Yes (Hospitalization, Other)
  Sender: FDA-Public Use
  Company Number: US-ELI_LILLY_AND_COMPANY-US200811001919

PATIENT
  Sex: Female

DRUGS (10)
  1. FORTEO [Suspect]
     Indication: OSTEOPOROSIS
     Dosage: 20 UG, DAILY (1/D)
     Dates: start: 20080820, end: 20081026
  2. FORTEO [Suspect]
     Dates: start: 20081101
  3. SYNTHROID [Concomitant]
  4. ZOLOFT [Concomitant]
     Indication: FEELING ABNORMAL
  5. ZYPREXA [Concomitant]
     Indication: FEELING ABNORMAL
  6. MULTI-VITAMIN [Concomitant]
  7. CITRACAL [Concomitant]
  8. MAGNESIUM SULFATE [Concomitant]
  9. ASPIRIN [Concomitant]
  10. AMBIEN [Concomitant]

REACTIONS (3)
  - FALL [None]
  - FEELING ABNORMAL [None]
  - PELVIC FRACTURE [None]
